FAERS Safety Report 12254409 (Version 5)
Quarter: 2016Q4

REPORT INFORMATION
  Report Type: Report from Study
  Country: JP (occurrence: JP)
  Receive Date: 20160411
  Receipt Date: 20161230
  Transmission Date: 20170207
  Serious: Yes (Hospitalization)
  Sender: FDA-Public Use
  Company Number: JP-PFIZER INC-2016194460

PATIENT
  Age: 43 Year
  Sex: Male
  Weight: 110.8 kg

DRUGS (4)
  1. EPLERENONE. [Concomitant]
     Active Substance: EPLERENONE
     Indication: HYPERTENSION
     Dosage: 50 MG, 2X/DAY
     Route: 048
     Dates: start: 20160311
  2. METFORMIN HYDROCHLORIDE. [Concomitant]
     Active Substance: METFORMIN HYDROCHLORIDE
     Indication: DIABETES MELLITUS
     Dosage: 500 MG, 2X/DAY
     Route: 048
     Dates: start: 20151112, end: 20160401
  3. AXITINIB [Suspect]
     Active Substance: AXITINIB
     Indication: RENAL CELL CARCINOMA
     Dosage: 5 MG, 2X/DAY
     Dates: start: 20160323, end: 20160324
  4. AXITINIB [Suspect]
     Active Substance: AXITINIB
     Dosage: 5 MG, 2X/DAY
     Dates: start: 20160329, end: 20160329

REACTIONS (1)
  - Pancreatitis acute [Recovered/Resolved]

NARRATIVE: CASE EVENT DATE: 20160326
